FAERS Safety Report 10030987 (Version 1)
Quarter: 2014Q1

REPORT INFORMATION
  Report Type: Spontaneous
  Country: ES (occurrence: ES)
  Receive Date: 20140324
  Receipt Date: 20140324
  Transmission Date: 20141002
  Serious: Yes (Other)
  Sender: FDA-Public Use
  Company Number: ES-MERCK-1403ESP010029

PATIENT
  Age: 81 Year
  Sex: 0

DRUGS (10)
  1. FOSAMAX SEMANAL 70 MG COMPRIMIDOS [Suspect]
     Dosage: 70 MG, QW
     Route: 048
     Dates: start: 2013, end: 20140120
  2. LIDALTRIN [Concomitant]
     Dosage: 10 MG, QOD
     Route: 048
  3. XALATAN [Concomitant]
     Dosage: 1 GTT, QD
     Route: 047
  4. OMNIC [Concomitant]
     Dosage: 0.4 MG, QD
     Route: 048
  5. LIPLAT [Concomitant]
     Dosage: 10 MG, QD
     Route: 048
  6. ADIRO [Concomitant]
     Dosage: 100 MG, QD
     Route: 048
  7. OSVICAL [Concomitant]
     Dosage: 1 DF, QD
     Route: 048
  8. AXIAGO [Concomitant]
     Dosage: 20 MG, QD
     Route: 048
  9. RINIALER [Concomitant]
     Dosage: 20 MG, QD
     Route: 048
  10. ACETAMINOPHEN [Concomitant]
     Dosage: 1 G, TID
     Route: 048

REACTIONS (1)
  - Erythema multiforme [Recovered/Resolved]
